FAERS Safety Report 10058340 (Version 1)
Quarter: 2014Q2

REPORT INFORMATION
  Report Type: Spontaneous
  Country: US (occurrence: None)
  Receive Date: 20140403
  Receipt Date: 20140403
  Transmission Date: 20141212
  Serious: Yes (Other)
  Sender: FDA-Public Use
  Company Number: None

PATIENT
  Age: 57 Year
  Sex: Male
  Weight: 127.01 kg

DRUGS (17)
  1. ETODOLAC [Suspect]
     Indication: OSTEOARTHRITIS
     Dosage: 1 PILL TWICE DAILY BY MOUTH
     Route: 048
     Dates: start: 20131021, end: 20140121
  2. ETODOLAC [Suspect]
     Indication: ARTHRALGIA
     Dosage: 1 PILL TWICE DAILY BY MOUTH
     Route: 048
     Dates: start: 20131021, end: 20140121
  3. NAPROSYN [Concomitant]
  4. LISINOPRIL [Concomitant]
  5. COQ-10 [Concomitant]
  6. GINGKO BILOBA [Concomitant]
  7. GARLIC [Concomitant]
  8. D3 [Concomitant]
  9. GYMNEMA [Concomitant]
  10. NIACIN [Concomitant]
  11. MSM [Concomitant]
  12. TUMERIC [Concomitant]
  13. HAWTHORN BERRIES [Concomitant]
  14. CORAL CALCIUM [Concomitant]
  15. CINNAMON [Concomitant]
  16. VITAMIN C [Concomitant]
  17. FLAXSEED OIL [Concomitant]

REACTIONS (6)
  - Dizziness [None]
  - Pruritus [None]
  - Rash [None]
  - Nasal congestion [None]
  - Vision blurred [None]
  - Tinnitus [None]
